FAERS Safety Report 5903225-9 (Version None)
Quarter: 2008Q3

REPORT INFORMATION
  Report Type: 
  Country: None (occurrence: None)
  Receive Date: 20080930
  Receipt Date: 20080924
  Transmission Date: 20090109
  Serious: Yes (Other)
  Sender: FDA-Public Use
  Company Number: US-ASTRAZENECA-2008UW20085

PATIENT
  Age: 4 Year
  Sex: Male

DRUGS (4)
  1. NEXIUM [Suspect]
     Indication: OESOPHAGITIS
     Route: 048
  2. NEXIUM [Suspect]
     Indication: CHOKING
     Route: 048
  3. ALBUTEROL [Concomitant]
  4. ZYRTEC [Concomitant]

REACTIONS (1)
  - CONVULSION [None]
